FAERS Safety Report 8618487 (Version 2)
Quarter: 2013Q1

REPORT INFORMATION
  Report Type: Spontaneous
  Country: US (occurrence: US)
  Receive Date: 20120618
  Receipt Date: 20130104
  Transmission Date: 20140127
  Serious: No
  Sender: FDA-Public Use
  Company Number: US-ASTRAZENECA-2012SE35760

PATIENT
  Sex: Female

DRUGS (18)
  1. NEXIUM [Suspect]
     Route: 048
     Dates: start: 20021107
  2. NEXIUM [Suspect]
     Route: 048
     Dates: start: 20110307
  3. TRAMADOL HCL [Concomitant]
     Dates: start: 20030627
  4. PAXIL CR [Concomitant]
     Dates: start: 20021213
  5. LEVOXYL [Concomitant]
     Dosage: 75 MCG
     Dates: start: 20021107
  6. ESTRADIOL [Concomitant]
     Dates: start: 20030203
  7. IMITREX [Concomitant]
     Dates: start: 20030224
  8. KETOROLAC [Concomitant]
     Dates: start: 20030331
  9. NEURONTIN [Concomitant]
     Dates: start: 20030512
  10. FLEXERIL [Concomitant]
     Dates: start: 20030627
  11. BUTALBITAL/APAP/CAFFEINE [Concomitant]
     Dates: start: 20030815
  12. LEVOTHYROXINE [Concomitant]
     Dosage: 75 MCG
     Dates: start: 20110207
  13. CARISOPRODOL [Concomitant]
     Dates: start: 20110215
  14. CRESTOR [Concomitant]
     Dates: start: 20110215
  15. CELEBREX [Concomitant]
     Dates: start: 20110301
  16. TRICOR [Concomitant]
     Dates: start: 20110307
  17. PREMARIN [Concomitant]
     Dates: start: 20110408
  18. CONCERTA ER [Concomitant]
     Dates: start: 20110505

REACTIONS (2)
  - Osteoporosis [Unknown]
  - Multiple fractures [Unknown]
